FAERS Safety Report 20970622 (Version 4)
Quarter: 2023Q1

REPORT INFORMATION
  Report Type: Report from Study
  Country: US (occurrence: US)
  Receive Date: 20220616
  Receipt Date: 20230201
  Transmission Date: 20230418
  Serious: Yes (Other)
  Sender: FDA-Public Use
  Company Number: US-SA-SAC20220607001843

PATIENT
  Sex: Female

DRUGS (1)
  1. AUBAGIO [Suspect]
     Active Substance: TERIFLUNOMIDE
     Indication: Multiple sclerosis
     Dosage: 14 MG, QD
     Route: 048
     Dates: start: 20210202

REACTIONS (18)
  - Multiple sclerosis relapse [Unknown]
  - Movement disorder [Unknown]
  - Fall [Unknown]
  - Fatigue [Unknown]
  - Abdominal discomfort [Unknown]
  - Bladder disorder [Unknown]
  - Musculoskeletal stiffness [Unknown]
  - Muscle spasticity [Unknown]
  - Depression [Unknown]
  - Pain [Unknown]
  - Balance disorder [Unknown]
  - Constipation [Unknown]
  - Back pain [Unknown]
  - Arthralgia [Unknown]
  - Diarrhoea [Unknown]
  - Paraesthesia [Unknown]
  - Alopecia [Unknown]
  - Product dose omission in error [Unknown]
